FAERS Safety Report 23888553 (Version 1)
Quarter: 2024Q2

REPORT INFORMATION
  Report Type: Spontaneous
  Country: US (occurrence: None)
  Receive Date: 20240522
  Receipt Date: 20240522
  Transmission Date: 20240716
  Serious: No
  Sender: FDA-Public Use
  Company Number: None

PATIENT
  Age: 35 Year
  Sex: Female
  Weight: 100.8 kg

DRUGS (1)
  1. INFED [Suspect]
     Active Substance: IRON DEXTRAN
     Indication: Anaemia
     Dosage: 1000 MG DAILY INTRAVENOUS
     Route: 042

REACTIONS (3)
  - Sneezing [None]
  - Cough [None]
  - Gingival pruritus [None]

NARRATIVE: CASE EVENT DATE: 20240506
